FAERS Safety Report 6745759-3 (Version None)
Quarter: 2010Q2

REPORT INFORMATION
  Report Type: 
  Country: None (occurrence: None)
  Receive Date: 20100528
  Receipt Date: 20100518
  Transmission Date: 20101027
  Serious: Yes (Other)
  Sender: FDA-Public Use
  Company Number: PHHY2010US20466

PATIENT
  Sex: Female
  Weight: 54.4 kg

DRUGS (7)
  1. ENABLEX [Suspect]
     Indication: INCONTINENCE
     Dosage: 7.5 MG DAILY
     Dates: start: 20091001, end: 20100325
  2. ENABLEX [Suspect]
     Indication: HYPERTONIC BLADDER
  3. EXELON [Concomitant]
     Indication: DEMENTIA ALZHEIMER'S TYPE
     Dosage: UNK
     Route: 048
  4. CYMBALTA [Concomitant]
     Indication: DEPRESSION
     Dosage: UNK
     Route: 048
  5. SYNTHROID [Concomitant]
     Indication: HYPOTHYROIDISM
     Route: 048
  6. FOSAMAX [Concomitant]
     Indication: OSTEOPOROSIS
     Dosage: UNK
     Route: 048
  7. NAMENDA [Concomitant]
     Indication: DEMENTIA ALZHEIMER'S TYPE
     Route: 048

REACTIONS (2)
  - APHASIA [None]
  - DEPRESSION [None]
